FAERS Safety Report 5387123-8 (Version None)
Quarter: 2007Q3

REPORT INFORMATION
  Report Type: 
  Country: None (occurrence: None)
  Receive Date: 20070711
  Receipt Date: 20070625
  Transmission Date: 20080115
  Serious: Yes (Other)
  Sender: FDA-Public Use
  Company Number: 2007BI010918

PATIENT
  Age: 43 Year
  Sex: Female

DRUGS (2)
  1. AVONEX [Suspect]
     Indication: MULTIPLE SCLEROSIS
     Dosage: 30 UG;QW IM
     Route: 030
     Dates: start: 20011101, end: 20030101
  2. AVONEX [Suspect]
     Indication: MULTIPLE SCLEROSIS
     Dosage: 30 UG;QW IM
     Route: 030
     Dates: start: 20030101, end: 20070514

REACTIONS (3)
  - ABORTION MISSED [None]
  - DRUG EXPOSURE BEFORE PREGNANCY [None]
  - NAUSEA [None]
